FAERS Safety Report 8480110-2 (Version None)
Quarter: 2012Q2

REPORT INFORMATION
  Report Type: 
  Country: None (occurrence: None)
  Receive Date: 20120629
  Receipt Date: 20120618
  Transmission Date: 20120825
  Serious: Yes (Life-Threatening, Other)
  Sender: FDA-Public Use
  Company Number: GB-ELI_LILLY_AND_COMPANY-GB201206005988

PATIENT
  Age: 71 Year
  Sex: Male
  Weight: 62 kg

DRUGS (5)
  1. OXAZEPAM [Concomitant]
     Dosage: UNK
     Dates: start: 20120207, end: 20120501
  2. RAMIPRIL [Concomitant]
     Dosage: UNK
     Dates: start: 20120404
  3. OLANZAPINE [Suspect]
     Indication: SCHIZOPHRENIA
     Dosage: 10 MG, UNK
     Dates: start: 20020101, end: 20120501
  4. TEMAZEPAM [Concomitant]
     Dosage: UNK
     Dates: start: 20120207, end: 20120501
  5. BIMATOPROST [Concomitant]
     Dosage: UNK
     Dates: start: 20120207, end: 20120501

REACTIONS (2)
  - BREAST CANCER MALE [None]
  - DIABETES MELLITUS [None]
